FAERS Safety Report 5482676-3 (Version None)
Quarter: 2007Q4

REPORT INFORMATION
  Report Type: 
  Country: None (occurrence: None)
  Receive Date: 20071011
  Receipt Date: 20071004
  Transmission Date: 20080405
  Serious: Yes (Hospitalization)
  Sender: FDA-Public Use
  Company Number: FR-ELI_LILLY_AND_COMPANY-FR200709001199

PATIENT
  Age: 61 Year
  Sex: Female
  Weight: 63 kg

DRUGS (4)
  1. FORTEO [Suspect]
     Indication: OSTEOPOROSIS
     Dosage: 20 UG, DAILY (1/D)
     Route: 058
     Dates: start: 20070227
  2. FORTEO [Suspect]
     Dosage: 20 UG, DAILY (1/D)
     Route: 058
     Dates: start: 20070901
  3. MOVICOL [Concomitant]
     Indication: CONSTIPATION
     Dosage: 2 D/F, DAILY (1/D)
     Route: 048
     Dates: start: 20070610, end: 20070630
  4. METEOSPASMYL /02143701/ [Concomitant]
     Indication: ABDOMINAL PAIN
     Dosage: 6 D/F, DAILY (1/D)
     Route: 048
     Dates: start: 20070610, end: 20070630

REACTIONS (2)
  - CHOLELITHIASIS [None]
  - PYREXIA [None]
